FAERS Safety Report 25732187 (Version 2)
Quarter: 2025Q4

REPORT INFORMATION
  Report Type: Spontaneous
  Country: US (occurrence: US)
  Receive Date: 20250827
  Receipt Date: 20251029
  Transmission Date: 20260118
  Serious: Yes (Other)
  Sender: NOVO NORDISK
  Company Number: US-NOVOPROD-1505248

PATIENT
  Age: 43 Year
  Sex: Female
  Weight: 79.365 kg

DRUGS (2)
  1. WEGOVY [Suspect]
     Active Substance: SEMAGLUTIDE
     Dosage: 2.4 MG, QW
  2. WEGOVY [Suspect]
     Active Substance: SEMAGLUTIDE
     Indication: Product used for unknown indication
     Dosage: 0.25 MG, QW
     Dates: start: 202502

REACTIONS (4)
  - Deep vein thrombosis [Unknown]
  - Deep vein thrombosis [Unknown]
  - Middle lobe syndrome [Unknown]
  - Pulmonary embolism [Recovering/Resolving]
